FAERS Safety Report 4943934-1 (Version None)
Quarter: 2006Q1

REPORT INFORMATION
  Report Type: 
  Country: None (occurrence: None)
  Receive Date: 20060313
  Receipt Date: 20060313
  Transmission Date: 20060701
  Serious: No
  Sender: FDA-Public Use
  Company Number: None

PATIENT
  Age: 61 Year
  Sex: Male
  Weight: 119 kg

DRUGS (1)
  1. FLEETS PHOSPHO SODA         FLEETS [Suspect]
     Indication: COLONOSCOPY
     Dosage: 3 FLUID OUNCES   ONE TIME ONLY   PO
     Route: 048
     Dates: start: 20010601, end: 20010601

REACTIONS (2)
  - BLOOD CREATININE INCREASED [None]
  - BLOOD GLUCOSE INCREASED [None]
